FAERS Safety Report 5352067-4 (Version None)
Quarter: 2007Q2

REPORT INFORMATION
  Report Type: 
  Country: None (occurrence: None)
  Receive Date: 20070607
  Receipt Date: 20070525
  Transmission Date: 20071010
  Serious: Yes (Death)
  Sender: FDA-Public Use
  Company Number: GXKR2007ZA04608

PATIENT
  Age: 54 Year
  Sex: Male

DRUGS (3)
  1. ENALAPRIL MALEATE [Suspect]
     Indication: HYPERTENSION
     Dates: start: 20050101
  2. ATENOLOL [Concomitant]
  3. THIAZIDES (NO INGREDIENTS/SUBSTANCES) [Concomitant]

REACTIONS (7)
  - ANAPHYLACTIC SHOCK [None]
  - ANGIOEDEMA [None]
  - ANOXIC ENCEPHALOPATHY [None]
  - CARDIO-RESPIRATORY ARREST [None]
  - LIP SWELLING [None]
  - STRIDOR [None]
  - SWOLLEN TONGUE [None]
